FAERS Safety Report 5947208-1 (Version None)
Quarter: 2008Q4

REPORT INFORMATION
  Report Type: 
  Country: None (occurrence: None)
  Receive Date: 20081110
  Receipt Date: 20081029
  Transmission Date: 20090506
  Serious: No
  Sender: FDA-Public Use
  Company Number: US-B.I. PHARMACEUTICALS,INC./RIDGEFIELD-2008-BP-16593BP

PATIENT
  Sex: Female

DRUGS (7)
  1. SPIRIVA [Suspect]
     Indication: CHRONIC OBSTRUCTIVE PULMONARY DISEASE
     Dosage: 18MCG
     Route: 055
     Dates: start: 20080401
  2. FLOVENT [Suspect]
     Dates: start: 20081001
  3. FORADIL [Concomitant]
  4. EVISTA [Concomitant]
  5. DIOVAN HCT [Concomitant]
  6. LABETALOL HCL [Concomitant]
  7. SYMBICORT [Concomitant]
     Dates: end: 20080801

REACTIONS (1)
  - SENSATION OF FOREIGN BODY [None]
